FAERS Safety Report 5897156-0 (Version None)
Quarter: 2008Q3

REPORT INFORMATION
  Report Type: 
  Country: None (occurrence: None)
  Receive Date: 20080923
  Receipt Date: 20080910
  Transmission Date: 20090109
  Serious: Yes (Death, Hospitalization, Other)
  Sender: FDA-Public Use
  Company Number: 52286

PATIENT
  Age: 45 Year
  Sex: Male

DRUGS (1)
  1. AZATHIOPRINE SODIUM [Suspect]
     Indication: LIVER TRANSPLANT
     Dosage: 100MG, DAY TWICE DAILY,

REACTIONS (22)
  - ASCITES [None]
  - BACTERAEMIA [None]
  - CLOSTRIDIUM DIFFICILE TOXIN TEST POSITIVE [None]
  - CONFUSIONAL STATE [None]
  - CRYPTOCOCCOSIS [None]
  - DYSARTHRIA [None]
  - FAECAL INCONTINENCE [None]
  - FATIGUE [None]
  - GAIT DISTURBANCE [None]
  - HAEMODIALYSIS [None]
  - HEADACHE [None]
  - HYDROCEPHALUS [None]
  - HYPERREFLEXIA [None]
  - MENINGITIS CRYPTOCOCCAL [None]
  - MUSCULOSKELETAL STIFFNESS [None]
  - NERVOUS SYSTEM DISORDER [None]
  - OLIGURIA [None]
  - PHOTOPHOBIA [None]
  - RENAL FAILURE [None]
  - SEPSIS [None]
  - SOMNOLENCE [None]
  - URINARY INCONTINENCE [None]
